FAERS Safety Report 5638435-1 (Version None)
Quarter: 2008Q1

REPORT INFORMATION
  Report Type: 
  Country: None (occurrence: None)
  Receive Date: 20080221
  Receipt Date: 20080221
  Transmission Date: 20080703
  Serious: Yes (Hospitalization)
  Sender: FDA-Public Use
  Company Number: None

PATIENT
  Age: 56 Year
  Sex: Female
  Weight: 114 kg

DRUGS (1)
  1. ADALIMUMAB 40 MG ABBOTT LABORATORIES [Suspect]
     Indication: RHEUMATOID ARTHRITIS
     Dosage: 40 MG ONCE WEEKLY SQ
     Route: 058
     Dates: start: 20070901, end: 20080101

REACTIONS (1)
  - PNEUMONIA CRYPTOCOCCAL [None]
